FAERS Safety Report 7251172-5 (Version None)
Quarter: 2011Q1

REPORT INFORMATION
  Report Type: 
  Country: None (occurrence: None)
  Receive Date: 20110128
  Receipt Date: 20110126
  Transmission Date: 20110831
  Serious: Yes (Hospitalization)
  Sender: FDA-Public Use
  Company Number: JP-ABBOTT-11P-087-0700795-00

PATIENT

DRUGS (1)
  1. HUMIRA [Suspect]
     Indication: ERYTHRODERMIC PSORIASIS
     Route: 058

REACTIONS (7)
  - HYPERURICAEMIA [None]
  - PYREXIA [None]
  - C-REACTIVE PROTEIN INCREASED [None]
  - WHITE BLOOD CELL COUNT INCREASED [None]
  - ERYTHRODERMIC PSORIASIS [None]
  - ARTHRALGIA [None]
  - PAIN OF SKIN [None]
